FAERS Safety Report 20258360 (Version 2)
Quarter: 2022Q1

REPORT INFORMATION
  Report Type: Report from Study
  Country: US (occurrence: US)
  Receive Date: 20211230
  Receipt Date: 20220123
  Transmission Date: 20220423
  Serious: Yes (Other)
  Sender: FDA-Public Use
  Company Number: US-UCBSA-2021046347

PATIENT
  Age: 69 Year
  Sex: Male

DRUGS (3)
  1. LACOSAMIDE [Suspect]
     Active Substance: LACOSAMIDE
     Indication: Seizure
     Dosage: 200 MILLIGRAM, 2X/DAY (BID)
  2. KEPPRA XR [Suspect]
     Active Substance: LEVETIRACETAM
     Indication: Product used for unknown indication
     Dosage: 1500 MILLIGRAM, 2X/DAY (BID)
  3. COVID-19 VACCINE [Concomitant]
     Indication: Product used for unknown indication
     Dosage: PFIZER VACCINE

REACTIONS (3)
  - Foot fracture [Not Recovered/Not Resolved]
  - COVID-19 immunisation [Unknown]
  - Product use issue [Unknown]

NARRATIVE: CASE EVENT DATE: 20210915
